FAERS Safety Report 15259861 (Version 2)
Quarter: 2018Q4

REPORT INFORMATION
  Report Type: Report from Study
  Country: US (occurrence: US)
  Receive Date: 20180809
  Receipt Date: 20181012
  Transmission Date: 20190204
  Serious: No
  Sender: FDA-Public Use
  Company Number: US-SA-2018SA213985

PATIENT
  Age: 46 Year
  Sex: Female

DRUGS (2)
  1. DUPILUMAB [Suspect]
     Active Substance: DUPILUMAB
     Indication: DERMATITIS ATOPIC
     Dosage: UNK
     Route: 058
     Dates: start: 201806, end: 201806
  2. DUPILUMAB [Suspect]
     Active Substance: DUPILUMAB
     Dosage: 1 DF, QOW

REACTIONS (3)
  - Back pain [Unknown]
  - Movement disorder [Unknown]
  - Product use issue [Unknown]

NARRATIVE: CASE EVENT DATE: 20180926
